FAERS Safety Report 4727437-5 (Version None)
Quarter: 2005Q3

REPORT INFORMATION
  Report Type: 
  Country: None (occurrence: None)
  Receive Date: 20050725
  Receipt Date: 20050725
  Transmission Date: 20060218
  Serious: Yes (Other)
  Sender: FDA-Public Use
  Company Number: None

PATIENT
  Sex: Male
  Weight: 69.4003 kg

DRUGS (2)
  1. CONCERTA [Suspect]
     Indication: FATIGUE
     Dosage: 1 TABLET DAI
     Dates: start: 20040816, end: 20050616
  2. CONCERTA [Suspect]
     Indication: MULTIPLE SCLEROSIS
     Dosage: 1 TABLET DAI
     Dates: start: 20040816, end: 20050616

REACTIONS (4)
  - CARDIAC DISORDER [None]
  - CHEST PAIN [None]
  - SUICIDAL IDEATION [None]
  - TACHYCARDIA [None]
